FAERS Safety Report 7917518-7 (Version None)
Quarter: 2011Q4

REPORT INFORMATION
  Report Type: 
  Country: None (occurrence: None)
  Receive Date: 20111114
  Receipt Date: 20111101
  Transmission Date: 20120403
  Serious: Yes (Other)
  Sender: FDA-Public Use
  Company Number: 2011SP048889

PATIENT
  Age: 47 Year
  Sex: Male
  Weight: 61.5 kg

DRUGS (6)
  1. REBETOL [Suspect]
     Indication: HEPATITIS C
     Dosage: 400 MG;BID;PO
     Route: 048
     Dates: start: 20110905
  2. DEPAS [Concomitant]
  3. PROMAZINE HYDROCHLORIDE [Concomitant]
  4. INTERFERON BETA NOS [Suspect]
     Indication: HEPATITIS C
     Dosage: 6 MIU;QD;INDRP
     Route: 041
     Dates: start: 20110905
  5. LANIRAPID [Concomitant]
  6. LENDORMIN D [Concomitant]

REACTIONS (3)
  - HYPERURICAEMIA [None]
  - CONDITION AGGRAVATED [None]
  - PYREXIA [None]
